FAERS Safety Report 8880655 (Version 2)
Quarter: 2012Q4

REPORT INFORMATION
  Report Type: 
  Country: US (occurrence: US)
  Receive Date: 20121101
  Receipt Date: 20121112
  Transmission Date: 20130627
  Serious: Yes (Death)
  Sender: FDA-Public Use
  Company Number: US-PURDUE-USA-2012-0095074

PATIENT
  Sex: Female

DRUGS (11)
  1. BUTRANS [Suspect]
     Indication: PAIN
     Dosage: 20 mcg/hr, see text
     Route: 062
  2. THEOPHYLLINE [Concomitant]
     Indication: CHRONIC OBSTRUCTIVE PULMONARY DISEASE
     Dosage: 200 mg, q6h
     Route: 048
  3. BRETHINE [Concomitant]
     Indication: CHRONIC OBSTRUCTIVE PULMONARY DISEASE
     Dosage: 25 mg, q6h
     Route: 048
  4. BUMEX [Concomitant]
     Indication: BLOOD PRESSURE
     Dosage: 1 mg, daily
     Route: 048
  5. ALDACTONE                          /00006201/ [Concomitant]
     Indication: BLOOD PRESSURE
     Dosage: 12.5 mg, UNK
     Route: 048
  6. COREG [Concomitant]
     Dosage: 3.125 mg, bid
     Route: 048
  7. ALTACE [Concomitant]
     Indication: BLOOD PRESSURE
     Dosage: 5 mg, daily
     Route: 048
  8. IMDUR [Concomitant]
     Indication: PRODUCT USED FOR UNKNOWN INDICATION
     Dosage: 30 mg, daily
     Route: 048
  9. PLAVIX [Concomitant]
     Indication: PRODUCT USED FOR UNKNOWN INDICATION
     Dosage: 75 mg, daily
     Route: 048
  10. ULTRACET [Concomitant]
     Indication: BREAKTHROUGH PAIN
     Route: 048
  11. VICODIN [Concomitant]
     Indication: BREAKTHROUGH PAIN
     Route: 048

REACTIONS (1)
  - Death [Fatal]
